FAERS Safety Report 9759648 (Version 2)
Quarter: 2015Q3

REPORT INFORMATION
  Report Type: Spontaneous
  Country: US (occurrence: US)
  Receive Date: 20131216
  Receipt Date: 20150806
  Transmission Date: 20151125
  Serious: No
  Sender: FDA-Public Use
  Company Number: US-GILEAD-2010-0028514

PATIENT
  Age: 79 Year
  Sex: Female

DRUGS (14)
  1. ATIVAN [Concomitant]
     Active Substance: LORAZEPAM
  2. LEXAPRO [Concomitant]
     Active Substance: ESCITALOPRAM OXALATE
  3. PROTONIX [Concomitant]
     Active Substance: PANTOPRAZOLE SODIUM
  4. ACTONEL [Concomitant]
     Active Substance: RISEDRONATE SODIUM
  5. PREDNISONE. [Concomitant]
     Active Substance: PREDNISONE
  6. DEMECLOCYCLINE [Concomitant]
     Active Substance: DEMECLOCYCLINE
  7. PREVACID [Concomitant]
     Active Substance: LANSOPRAZOLE
  8. PRIMIDONE. [Concomitant]
     Active Substance: PRIMIDONE
  9. LASIX [Concomitant]
     Active Substance: FUROSEMIDE
  10. ASPIRIN. [Concomitant]
     Active Substance: ASPIRIN
  11. LETAIRIS [Suspect]
     Active Substance: AMBRISENTAN
     Indication: PULMONARY ARTERIAL HYPERTENSION
     Route: 048
     Dates: start: 20090604, end: 20100311
  12. FLONASE [Concomitant]
     Active Substance: FLUTICASONE PROPIONATE
  13. CLARITIN [Concomitant]
     Active Substance: LORATADINE
  14. LEVODOPA/CARBIDOPA [Concomitant]

REACTIONS (1)
  - No therapeutic response [Not Recovered/Not Resolved]
